FAERS Safety Report 17369055 (Version 1)
Quarter: 2020Q1

REPORT INFORMATION
  Report Type: Spontaneous
  Country: US (occurrence: US)
  Receive Date: 20200204
  Receipt Date: 20200204
  Transmission Date: 20200409
  Serious: No
  Sender: FDA-Public Use
  Company Number: NVSC2019US041256

PATIENT
  Age: 12 Year
  Sex: Male
  Weight: 77.11 kg

DRUGS (2)
  1. RITALIN [Suspect]
     Active Substance: METHYLPHENIDATE HYDROCHLORIDE
     Indication: ATTENTION DEFICIT/HYPERACTIVITY DISORDER
     Dosage: (LOW DOSE)
     Route: 065
  2. CONCERTA [Suspect]
     Active Substance: METHYLPHENIDATE HYDROCHLORIDE
     Indication: ATTENTION DEFICIT/HYPERACTIVITY DISORDER
     Dosage: (LOW STARTING DOSE)
     Route: 065

REACTIONS (3)
  - Tic [Unknown]
  - Dyskinesia [Unknown]
  - Restless legs syndrome [Recovered/Resolved]
